FAERS Safety Report 9015777 (Version 1)
Quarter: 2013Q1

REPORT INFORMATION
  Report Type: Spontaneous
  Country: GB (occurrence: None)
  Receive Date: 20130102
  Receipt Date: 20130102
  Transmission Date: 20140127
  Serious: Yes (Hospitalization)
  Sender: FDA-Public Use
  Company Number: 2012-01855

PATIENT
  Age: 1 Hour
  Sex: Male
  Weight: 3.02 kg

DRUGS (3)
  1. QUETIAPINE (UNKNOWN) [Suspect]
     Indication: PRODUCT USED FOR UNKNOWN INDICATION
     Route: 064
     Dates: start: 20120201, end: 20120729
  2. CANNABIS SATIVA (CANNABIS) (UNKNOWN) [Concomitant]
  3. CITALOPRAM (UNKNOWN) CITALOPRAM) [Concomitant]

REACTIONS (2)
  - Somnolence neonatal [None]
  - Maternal drugs affecting foetus [None]
